FAERS Safety Report 8267704-4 (Version None)
Quarter: 2012Q2

REPORT INFORMATION
  Report Type: 
  Country: None (occurrence: None)
  Receive Date: 20120409
  Receipt Date: 20120327
  Transmission Date: 20120825
  Serious: Yes (Hospitalization)
  Sender: FDA-Public Use
  Company Number: NL-CELGENEUS-114-20785-12033146

PATIENT
  Sex: Male
  Weight: 74 kg

DRUGS (11)
  1. MELPHALAN HYDROCHLORIDE [Suspect]
     Indication: MULTIPLE MYELOMA
     Dosage: 14 MILLIGRAM
     Route: 048
     Dates: start: 20120307
  2. TOLBUTAMIDE [Concomitant]
     Indication: DIABETES MELLITUS
     Dosage: 500 MILLIGRAM
     Route: 048
     Dates: start: 20110606
  3. NITROGLYCERIN [Concomitant]
     Indication: VASODILATATION
     Dosage: .8 MILLIGRAM
     Route: 060
     Dates: start: 20120323
  4. FOSBER [Concomitant]
     Route: 055
     Dates: start: 20120306
  5. ASCAL [Concomitant]
     Indication: ANTICOAGULANT THERAPY
     Dosage: 80 MILLIGRAM
     Route: 048
     Dates: start: 20111203
  6. AMLODIPINE [Concomitant]
     Dosage: 5 MILLIGRAM
     Route: 048
     Dates: start: 20111203
  7. THALIDOMIDE [Suspect]
     Indication: MULTIPLE MYELOMA
     Dosage: 200 MILLIGRAM
     Route: 048
     Dates: start: 20120307
  8. METFORMIN HCL [Concomitant]
     Indication: DIABETES MELLITUS
     Dosage: 1000 MILLIGRAM
     Route: 048
     Dates: start: 20120323
  9. LIPITOR [Concomitant]
     Indication: BLOOD CHOLESTEROL DECREASED
     Dosage: 40 MILLIGRAM
     Route: 048
  10. PREDNISONE TAB [Suspect]
     Indication: MULTIPLE MYELOMA
     Dosage: 150 MILLIGRAM
     Route: 048
     Dates: start: 20120307
  11. NEXIUM [Concomitant]
     Indication: DYSPEPSIA
     Dosage: 40 MILLIGRAM
     Route: 048
     Dates: start: 20110904

REACTIONS (2)
  - CIRCULATORY COLLAPSE [None]
  - ATRIAL FIBRILLATION [None]
